FAERS Safety Report 7980515-X (Version None)
Quarter: 2011Q4

REPORT INFORMATION
  Report Type: 
  Country: None (occurrence: None)
  Receive Date: 20111214
  Receipt Date: 20111206
  Transmission Date: 20120403
  Serious: Yes (Hospitalization)
  Sender: FDA-Public Use
  Company Number: US-GLAXOSMITHKLINE-B0750928A

PATIENT
  Age: 56 Year
  Sex: Male
  Weight: 116.8 kg

DRUGS (3)
  1. AVANDIA [Suspect]
     Indication: DIABETES MELLITUS
     Dosage: 8MG PER DAY
     Route: 048
     Dates: start: 20050725, end: 20080505
  2. ZOCOR [Concomitant]
  3. METFORMIN HCL [Concomitant]

REACTIONS (6)
  - CARDIAC VENTRICULOGRAM LEFT [None]
  - ARTERIOSCLEROSIS [None]
  - ARTERIAL OCCLUSIVE DISEASE [None]
  - CATHETERISATION CARDIAC [None]
  - MYOCARDIAL INFARCTION [None]
  - CORONARY ARTERY DISEASE [None]
